FAERS Safety Report 7275578-3 (Version None)
Quarter: 2011Q1

REPORT INFORMATION
  Report Type: 
  Country: None (occurrence: None)
  Receive Date: 20110131
  Receipt Date: 20110131
  Transmission Date: 20110831
  Serious: Yes (Life-Threatening, Other)
  Sender: FDA-Public Use
  Company Number: None

PATIENT
  Age: 46 Year
  Sex: Female
  Weight: 111.5849 kg

DRUGS (1)
  1. ALCOHOL PREP ISOPROPYL ALCOHOL 70% TRIAD GROUP INC. [Suspect]
     Indication: OSTEOMYELITIS
     Dates: start: 20100827, end: 20101005

REACTIONS (13)
  - DIARRHOEA [None]
  - PYREXIA [None]
  - SINUS CONGESTION [None]
  - WHITE BLOOD CELL COUNT DECREASED [None]
  - MALAISE [None]
  - CHILLS [None]
  - ASTHENIA [None]
  - HAEMOGLOBIN DECREASED [None]
  - FATIGUE [None]
  - PAIN IN EXTREMITY [None]
  - MEAN CELL HAEMOGLOBIN CONCENTRATION DECREASED [None]
  - HAEMATOCRIT DECREASED [None]
  - MEAN CELL HAEMOGLOBIN DECREASED [None]
